FAERS Safety Report 10210827 (Version 1)
Quarter: 2014Q2

REPORT INFORMATION
  Report Type: Spontaneous
  Country: US (occurrence: None)
  Receive Date: 20140530
  Receipt Date: 20140530
  Transmission Date: 20141212
  Serious: Yes (Other)
  Sender: FDA-Public Use
  Company Number: None

PATIENT
  Sex: Female
  Weight: 70.31 kg

DRUGS (2)
  1. LEVOTHYROXINE [Suspect]
     Indication: HYPOTHYROIDISM
     Dosage: UNKNOWN, BEFORE OUR OFFICE
  2. LEVOTHYROXINE [Suspect]
     Indication: HYPERTHYROIDISM
     Dosage: UNKNOWN, BEFORE OUR OFFICE

REACTIONS (3)
  - Headache [None]
  - Malaise [None]
  - Nausea [None]
